FAERS Safety Report 7774368-2 (Version None)
Quarter: 2011Q3

REPORT INFORMATION
  Report Type: 
  Country: None (occurrence: None)
  Receive Date: 20110923
  Receipt Date: 20110909
  Transmission Date: 20111222
  Serious: Yes (Hospitalization, Other)
  Sender: FDA-Public Use
  Company Number: PHHY2011BR80550

PATIENT
  Sex: Male
  Weight: 86 kg

DRUGS (3)
  1. DIOVAN HCT [Suspect]
     Indication: HYPERTENSION
     Dosage: 1 DF (320/12.5MG) DAILY
  2. PANTOPRAZOLE [Concomitant]
     Indication: GASTRIC DISORDER
     Dosage: UNK UKN, UNK
  3. INSULIN [Concomitant]
     Indication: DIABETES MELLITUS
     Dosage: 1 APPLICATION 3 TIMES A DAY
     Route: 058

REACTIONS (3)
  - THYROID NEOPLASM [None]
  - HYPOAESTHESIA [None]
  - CALCIUM DEFICIENCY [None]
